FAERS Safety Report 20839477 (Version 1)
Quarter: 2022Q2

REPORT INFORMATION
  Report Type: Spontaneous
  Country: US (occurrence: US)
  Receive Date: 20220517
  Receipt Date: 20220517
  Transmission Date: 20220721
  Serious: Yes (Life-Threatening)
  Sender: FDA-Public Use
  Company Number: US-NOVARTISPH-NVSC2022US112906

PATIENT

DRUGS (1)
  1. PREDNISOLONE [Suspect]
     Active Substance: PREDNISOLONE
     Indication: Product used for unknown indication
     Dosage: UNK (PREDNISOLONE ACETATE OPHTHALMIC SUSPENSION)
     Route: 065

REACTIONS (9)
  - Depression suicidal [Unknown]
  - Eye injury [Unknown]
  - Visual impairment [Unknown]
  - Eye colour change [Unknown]
  - Eye swelling [Unknown]
  - Dry eye [Unknown]
  - Scar [Unknown]
  - Depression [Unknown]
  - Anger [Unknown]
